FAERS Safety Report 8418959 (Version 7)
Quarter: 2012Q4

REPORT INFORMATION
  Report Type: 
  Country: US (occurrence: US)
  Receive Date: 20120221
  Receipt Date: 20121130
  Transmission Date: 20130627
  Serious: Yes (Hospitalization, Disabling, Other)
  Sender: FDA-Public Use
  Company Number: US-009507513-1202USA02912

PATIENT

DRUGS (2)
  1. FOSAMAX [Suspect]
     Indication: OSTEOPOROSIS
     Dosage: 70 mg, qw
     Route: 048
     Dates: start: 2003, end: 20090126
  2. FOSAMAX [Suspect]
     Indication: OSTEOPOROSIS
     Dosage: 70 mg, QW
     Route: 048
     Dates: start: 20080726, end: 20090126

REACTIONS (49)
  - Closed fracture manipulation [Not Recovered/Not Resolved]
  - Femur fracture [Recovered/Resolved]
  - Intramedullary rod insertion [Unknown]
  - Low turnover osteopathy [Not Recovered/Not Resolved]
  - Arthroscopy [Unknown]
  - Transfusion [Unknown]
  - Fall [Unknown]
  - Knee arthroplasty [Unknown]
  - Fall [Unknown]
  - Salivary gland operation [Unknown]
  - Femur fracture [Unknown]
  - Femur fracture [Not Recovered/Not Resolved]
  - Tooth disorder [Unknown]
  - Tooth disorder [Unknown]
  - Dry eye [Unknown]
  - Muscular weakness [Unknown]
  - Haemorrhoids [Unknown]
  - Anal polyp [Unknown]
  - Diverticulum [Unknown]
  - Duodenitis [Unknown]
  - Animal bite [Unknown]
  - Cardiac disorder [Unknown]
  - Large intestine polyp [Unknown]
  - Blood glucose abnormal [Unknown]
  - Smear cervix abnormal [Unknown]
  - Urinary incontinence [Unknown]
  - Hypothyroidism [Not Recovered/Not Resolved]
  - Vitiligo [Not Recovered/Not Resolved]
  - Left ventricular hypertrophy [Not Recovered/Not Resolved]
  - Hypertensive heart disease [Not Recovered/Not Resolved]
  - Salivary gland mass [Unknown]
  - Renal cyst [Unknown]
  - Aortic valve incompetence [Unknown]
  - Mitral valve incompetence [Unknown]
  - Cholelithiasis [Unknown]
  - Pathological fracture [Unknown]
  - Basedow^s disease [Unknown]
  - Aortic aneurysm [Unknown]
  - Cataract [Unknown]
  - Hypertension [Unknown]
  - Accessory navicular syndrome [Unknown]
  - Hypokalaemia [Unknown]
  - Anaemia [Unknown]
  - Blood magnesium decreased [Unknown]
  - Osteopenia [Unknown]
  - Bursitis [Recovered/Resolved]
  - Back pain [Not Recovered/Not Resolved]
  - Gastritis [Unknown]
  - Diarrhoea [Unknown]
